FAERS Safety Report 6547759-5 (Version None)
Quarter: 2010Q1

REPORT INFORMATION
  Report Type: 
  Country: None (occurrence: None)
  Receive Date: 20100124
  Receipt Date: 20091005
  Transmission Date: 20100710
  Serious: No
  Sender: FDA-Public Use
  Company Number: US-ALEXION-A200900811

PATIENT

DRUGS (1)
  1. SOLIRIS [Suspect]
     Dosage: MAINTENANCE DOSING

REACTIONS (1)
  - IDIOPATHIC THROMBOCYTOPENIC PURPURA [None]
